FAERS Safety Report 4734287-2 (Version None)
Quarter: 2005Q3

REPORT INFORMATION
  Report Type: 
  Country: None (occurrence: None)
  Receive Date: 20050802
  Receipt Date: 20050722
  Transmission Date: 20060218
  Serious: Yes (Hospitalization, Other)
  Sender: FDA-Public Use
  Company Number: KII-2005-0017725

PATIENT
  Age: 58 Year
  Sex: Female

DRUGS (8)
  1. MORPHINE SULFATE [Suspect]
     Indication: PAIN
     Dosage: SEE TEXT,ORAL
     Route: 048
  2. PHENOTHIAZINE (PHENOTHIAZINE0 [Suspect]
     Dosage: ORAL
     Route: 048
  3. BENZODIAZEPINE DERIVATIVES [Suspect]
     Dosage: ORAL
     Route: 048
  4. ACETAMINOPHEN AND OXYCODONE HCL [Suspect]
     Dosage: SEE TEXT
  5. ACETYLSALICYLIC ACID IN COMBIANNTION WITH OTHER  DRUG [Suspect]
     Dosage: Q3D , TRANSDERMAL
     Route: 062
  6. SSRI [Suspect]
  7. ANTIEPILEPTICS [Suspect]
     Dosage: SEE TEXT
  8. ANTIDEPRESSANTS [Suspect]
     Dosage: HS

REACTIONS (18)
  - AGITATION [None]
  - BLOOD MAGNESIUM DECREASED [None]
  - BLOOD POTASSIUM DECREASED [None]
  - BLOOD PRESSURE INCREASED [None]
  - BODY TEMPERATURE INCREASED [None]
  - CONFUSIONAL STATE [None]
  - DYSPHAGIA [None]
  - HYPOTENSION [None]
  - HYPOVOLAEMIA [None]
  - LUNG INFILTRATION [None]
  - MULTIPLE DRUG OVERDOSE [None]
  - PARANOIA [None]
  - RALES [None]
  - RENAL FAILURE ACUTE [None]
  - RESTLESSNESS [None]
  - SOMNOLENCE [None]
  - TREMOR [None]
  - URINE ABNORMALITY [None]
